FAERS Safety Report 5758920-1 (Version None)
Quarter: 2008Q2

REPORT INFORMATION
  Report Type: 
  Country: None (occurrence: None)
  Receive Date: 20080604
  Receipt Date: 20080523
  Transmission Date: 20081010
  Serious: Yes (Hospitalization, Other)
  Sender: FDA-Public Use
  Company Number: US-ROCHE-557759

PATIENT
  Sex: Female
  Weight: 69 kg

DRUGS (24)
  1. MYCOPHENOLATE MOFETIL [Suspect]
     Indication: LIVER TRANSPLANT
     Route: 065
     Dates: start: 20080129, end: 20080214
  2. MYCOPHENOLATE MOFETIL [Suspect]
     Route: 065
     Dates: start: 20080214, end: 20080229
  3. MYCOPHENOLATE MOFETIL [Suspect]
     Route: 065
     Dates: start: 20080307, end: 20080312
  4. MYCOPHENOLATE MOFETIL [Suspect]
     Route: 065
     Dates: start: 20080312, end: 20080410
  5. MYCOPHENOLATE MOFETIL [Suspect]
     Route: 065
     Dates: start: 20080410, end: 20080414
  6. MYCOPHENOLATE MOFETIL [Suspect]
     Route: 065
     Dates: start: 20080414, end: 20080424
  7. MYCOPHENOLATE MOFETIL [Suspect]
     Route: 065
     Dates: start: 20080424, end: 20080504
  8. GENGRAF [Concomitant]
     Route: 048
     Dates: start: 20050708, end: 20080128
  9. GENGRAF [Concomitant]
     Dosage: REPORTED AS QPM
     Route: 048
     Dates: start: 20080129, end: 20080229
  10. GENGRAF [Concomitant]
     Dosage: 50MG IN THE MORNING 25MG IN THE EVENING. 50 MG DOSE STARTED ON 30 JANUARY 2008.
     Route: 048
     Dates: start: 20080129, end: 20080209
  11. GENGRAF [Concomitant]
     Route: 048
     Dates: start: 20080301, end: 20080302
  12. GENGRAF [Concomitant]
     Route: 048
     Dates: start: 20080303, end: 20080422
  13. ASPIRIN [Concomitant]
     Dosage: FREQUENCY REPORTED AS QDAY
     Route: 048
     Dates: start: 20040901
  14. METOPROLOL TARTRATE [Concomitant]
     Route: 048
     Dates: start: 20040901
  15. MAGNESIUM OXIDE [Concomitant]
     Route: 048
     Dates: start: 20050301
  16. ZOLOFT [Concomitant]
     Dosage: FREQUENCY REPORTED AS QDAY
     Route: 048
     Dates: start: 20041101
  17. INSULIN [Concomitant]
     Route: 058
     Dates: start: 20040901
  18. MULTI-VITAMIN [Concomitant]
     Route: 048
     Dates: start: 20050901
  19. LISINOPRIL [Concomitant]
     Dosage: FREQUENCY REPORTED AS QDAY
     Route: 048
     Dates: start: 20060101
  20. CALCIUM/VITAMIN D [Concomitant]
     Dosage: DRUG REPORTED AS CALCIUM+D
     Route: 048
     Dates: start: 20060101
  21. CALCIUM/VITAMIN D [Concomitant]
     Dosage: DRUG REPORTED AS CALCIUM+D
     Route: 048
     Dates: start: 20060101
  22. LIDODERM [Concomitant]
     Route: 061
     Dates: start: 20070701
  23. LIDODERM [Concomitant]
     Dosage: DOSE: 1 PATCH
     Route: 061
     Dates: start: 20071101
  24. OXYCODONE HCL [Concomitant]
     Route: 048
     Dates: start: 20071101

REACTIONS (5)
  - DEHYDRATION [None]
  - DIARRHOEA [None]
  - DIZZINESS [None]
  - HYPOTENSION [None]
  - RENAL FAILURE ACUTE [None]
